FAERS Safety Report 19626367 (Version 1)
Quarter: 2021Q3

REPORT INFORMATION
  Report Type: Spontaneous
  Country: CZ (occurrence: CZ)
  Receive Date: 20210728
  Receipt Date: 20210728
  Transmission Date: 20211014
  Serious: Yes (Life-Threatening, Hospitalization, Other)
  Sender: FDA-Public Use
  Company Number: CZ-PUMA BIOTECHNOLOGY, LTD.-2021-PUM-CZ004022

PATIENT

DRUGS (6)
  1. VEROSPIRON [Suspect]
     Active Substance: SPIRONOLACTONE
     Indication: CARDIAC FAILURE
     Dosage: 25 MG, ONE PILL PER DAY
     Route: 048
     Dates: start: 20210607, end: 20210609
  2. VEROSPIRON [Suspect]
     Active Substance: SPIRONOLACTONE
     Dosage: 50 MG, ONE PILL PER DAY
     Route: 048
     Dates: start: 202104, end: 20210606
  3. ENTRESTO [Suspect]
     Active Substance: SACUBITRIL\VALSARTAN
     Indication: CARDIAC FAILURE
     Dosage: 1 DF, 97 MG/103 MG 1?0?1
     Route: 048
     Dates: start: 202104, end: 20210607
  4. LETMYLAN [Concomitant]
     Indication: BREAST CANCER
     Dosage: 2.5 MG, UNK
     Route: 048
     Dates: start: 20201031, end: 20210701
  5. NERLYNX [Suspect]
     Active Substance: NERATINIB
     Indication: BREAST CANCER
     Dosage: 240 MG, 6 PILLS ONCE A DAY
     Route: 048
     Dates: start: 20210415, end: 20210607
  6. FURON [Suspect]
     Active Substance: FUROSEMIDE
     Indication: CARDIAC FAILURE
     Dosage: 40 MG 1/2?0?0
     Route: 048
     Dates: start: 202012, end: 20210609

REACTIONS (6)
  - Dehydration [Recovered/Resolved]
  - Hypotension [Recovered/Resolved]
  - Vomiting [Recovered/Resolved]
  - Fatigue [Recovered/Resolved]
  - Gastrointestinal toxicity [Recovered/Resolved]
  - Renal failure [Recovered/Resolved]

NARRATIVE: CASE EVENT DATE: 20210604
